FAERS Safety Report 25598624 (Version 2)
Quarter: 2025Q3

REPORT INFORMATION
  Report Type: Spontaneous
  Country: US (occurrence: US)
  Receive Date: 20250723
  Receipt Date: 20250729
  Transmission Date: 20251020
  Serious: Yes (Life-Threatening, Hospitalization, Other)
  Sender: CIPLA
  Company Number: US-CIPLA (EU) LIMITED-2025US08853

PATIENT

DRUGS (8)
  1. AMLODIPINE [Interacting]
     Active Substance: AMLODIPINE BESYLATE
     Route: 065
  2. LISINOPRIL [Interacting]
     Active Substance: LISINOPRIL
     Route: 065
  3. HYDROXYZINE [Interacting]
     Active Substance: HYDROXYZINE HYDROCHLORIDE
     Route: 065
  4. VENLAFAXINE [Interacting]
     Active Substance: VENLAFAXINE HYDROCHLORIDE
     Route: 065
  5. CARIPRAZINE [Interacting]
     Active Substance: CARIPRAZINE
     Route: 065
  6. BREXPIPRAZOLE [Interacting]
     Active Substance: BREXPIPRAZOLE
     Route: 065
  7. TRAZODONE [Interacting]
     Active Substance: TRAZODONE HYDROCHLORIDE
     Route: 065
  8. KETAMINE [Suspect]
     Active Substance: KETAMINE
     Indication: Sedation
     Route: 065

REACTIONS (8)
  - Respiratory distress [Unknown]
  - Serotonin syndrome [Recovered/Resolved]
  - Distributive shock [Unknown]
  - Intestinal ischaemia [Unknown]
  - Hypervolaemia [Unknown]
  - Condition aggravated [Unknown]
  - Intentional overdose [Unknown]
  - Drug interaction [Unknown]
